FAERS Safety Report 26173377 (Version 1)
Quarter: 2025Q4

REPORT INFORMATION
  Report Type: Spontaneous
  Country: EU (occurrence: None)
  Receive Date: 20251218
  Receipt Date: 20251218
  Transmission Date: 20260118
  Serious: Yes (Other)
  Sender: AUROBINDO
  Company Number: EU-BFARM-25007617

PATIENT
  Age: 74 Year
  Sex: Female
  Weight: 93 kg

DRUGS (11)
  1. PREDNISOLONE [Suspect]
     Active Substance: PREDNISOLONE
     Indication: Polymyalgia rheumatica
     Dosage: UNK (SINCE 05.04.2022 2X60 MG)
     Route: 065
  2. PREDNISOLONE [Suspect]
     Active Substance: PREDNISOLONE
     Dosage: 15 MILLIGRAM, ONCE A DAY (1-0-0, DOSE AS PLANNED)
     Route: 065
     Dates: start: 20250120, end: 20250127
  3. PREDNISOLONE [Suspect]
     Active Substance: PREDNISOLONE
     Dosage: 12.5 MILLIGRAM, ONCE A DAY (1-0-0, DOSE AS PLANNED)
     Route: 065
     Dates: start: 20250128, end: 20250204
  4. PREDNISOLONE [Suspect]
     Active Substance: PREDNISOLONE
     Dosage: 10 MILLIGRAM, ONCE A DAY (1-0-0, DOSE AS PLANNED)
     Route: 065
     Dates: start: 20250205, end: 20250212
  5. PREDNISOLONE [Suspect]
     Active Substance: PREDNISOLONE
     Dosage: 7.5 MILLIGRAM, ONCE A DAY (1-0-0, DOSE AS PLANNED)
     Route: 065
     Dates: start: 20250213, end: 20250220
  6. PREDNISOLONE [Suspect]
     Active Substance: PREDNISOLONE
     Dosage: 5 MILLIGRAM, ONCE A DAY (1-0-0, DOSE AS PLANNED; UNTIL NEXT APPOINTMENT)
     Route: 065
     Dates: start: 20250221
  7. METHOTREXATE [Suspect]
     Active Substance: METHOTREXATE
     Indication: Polymyalgia rheumatica
     Dosage: UNK
  8. METHOTREXATE [Suspect]
     Active Substance: METHOTREXATE
     Indication: Giant cell arteritis
  9. TOCILIZUMAB [Suspect]
     Active Substance: TOCILIZUMAB
     Indication: Polymyalgia rheumatica
     Dosage: UNK (EVERY 14 DAYS)
     Route: 065
  10. TOCILIZUMAB [Suspect]
     Active Substance: TOCILIZUMAB
     Indication: Giant cell arteritis
  11. TOCILIZUMAB [Suspect]
     Active Substance: TOCILIZUMAB
     Indication: Product used for unknown indication
     Dosage: 1 DOSAGE FORM, EVERY WEEK (RESUME ONCE A WEEK)
     Route: 065
     Dates: start: 202401

REACTIONS (23)
  - Dementia [Unknown]
  - Autoimmune disorder [Unknown]
  - Atrial fibrillation [Recovering/Resolving]
  - Angina pectoris [Recovering/Resolving]
  - Insomnia [Not Recovered/Not Resolved]
  - Paraesthesia [Not Recovered/Not Resolved]
  - Swelling face [Not Recovered/Not Resolved]
  - Depression [Unknown]
  - Intervertebral disc protrusion [Unknown]
  - Mobility decreased [Unknown]
  - Pain [Unknown]
  - Dyspnoea [Recovering/Resolving]
  - Loss of personal independence in daily activities [Not Recovered/Not Resolved]
  - Flushing [Not Recovered/Not Resolved]
  - Skin swelling [Not Recovered/Not Resolved]
  - Facial discomfort [Not Recovered/Not Resolved]
  - Masticatory pain [Unknown]
  - Headache [Unknown]
  - Myalgia [Unknown]
  - Arthralgia [Unknown]
  - Neck pain [Unknown]
  - Restlessness [Unknown]
  - Vision blurred [Unknown]

NARRATIVE: CASE EVENT DATE: 20220101
